FAERS Safety Report 5843430-3 (Version None)
Quarter: 2008Q3

REPORT INFORMATION
  Report Type: 
  Country: None (occurrence: None)
  Receive Date: 20080811
  Receipt Date: 20080731
  Transmission Date: 20090109
  Serious: Yes (Hospitalization, Disabling)
  Sender: FDA-Public Use
  Company Number: 2007-02499

PATIENT
  Age: 62 Year
  Sex: Male

DRUGS (9)
  1. VELCADE [Suspect]
     Indication: MULTIPLE MYELOMA
     Dates: start: 20070514, end: 20070622
  2. DOXORUBICIN HCL [Suspect]
     Indication: MULTIPLE MYELOMA
  3. DEXAMETHASONE TAB [Suspect]
     Indication: MULTIPLE MYELOMA
  4. ACCUPRO (QUINAPRIL HYDROCHLORIDE) [Concomitant]
  5. OMEPRAZOLE [Concomitant]
  6. CIPRO [Concomitant]
  7. ACYCLOVIR [Concomitant]
  8. METOPROLOL TARTRATE [Concomitant]
  9. ACETYLSALICYLIC ACID SRT [Concomitant]

REACTIONS (6)
  - DISEASE PROGRESSION [None]
  - DRUG TOXICITY [None]
  - PARESIS [None]
  - PERIPHERAL MOTOR NEUROPATHY [None]
  - PNEUMONIA CYTOMEGALOVIRAL [None]
  - POLYNEUROPATHY [None]
